FAERS Safety Report 23667197 (Version 1)
Quarter: 2024Q1

REPORT INFORMATION
  Report Type: Spontaneous
  Country: US (occurrence: US)
  Receive Date: 20240325
  Receipt Date: 20240325
  Transmission Date: 20240410
  Serious: Yes (Hospitalization)
  Sender: FDA-Public Use
  Company Number: US-GTI-000185

PATIENT
  Age: 46 Year
  Sex: Female

DRUGS (2)
  1. PREDNISONE [Suspect]
     Active Substance: PREDNISONE
     Indication: Haemolytic anaemia
     Dosage: THREE DOSES
     Route: 065
  2. PREDNISONE [Suspect]
     Active Substance: PREDNISONE
     Indication: Cold type haemolytic anaemia
     Dosage: THREE DOSES
     Route: 065

REACTIONS (1)
  - Treatment failure [Recovered/Resolved]
